FAERS Safety Report 8984641 (Version 1)
Quarter: 2012Q4

REPORT INFORMATION
  Report Type: 
  Country: US (occurrence: US)
  Receive Date: 20121226
  Receipt Date: 20121226
  Transmission Date: 20130627
  Serious: No
  Sender: FDA-Public Use
  Company Number: US-BAYER-2012-134698

PATIENT
  Age: 56 Year
  Sex: Male

DRUGS (7)
  1. LEVITRA [Suspect]
     Indication: ERECTILE DYSFUNCTION
     Dosage: 20 mg, PRN
     Route: 048
     Dates: start: 20121220
  2. TRIAMTERENE [Concomitant]
  3. DIOVAN [Concomitant]
  4. ASPIRIN [Concomitant]
  5. MULTIVITAMIN [Concomitant]
     Indication: IRON LOW
  6. FISH OIL [Concomitant]
  7. LOVASTATIN [Concomitant]

REACTIONS (4)
  - Sinus headache [None]
  - Erythema [None]
  - Dyspnoea [None]
  - Nasal congestion [None]
